FAERS Safety Report 9224705 (Version 2)
Quarter: 2013Q2

REPORT INFORMATION
  Report Type: Spontaneous
  Country: JP (occurrence: JP)
  Receive Date: 20130411
  Receipt Date: 20130419
  Transmission Date: 20140414
  Serious: Yes (Other)
  Sender: FDA-Public Use
  Company Number: JP-PFIZER INC-2013113682

PATIENT
  Age: 84 Year
  Sex: Female
  Weight: 51.4 kg

DRUGS (1)
  1. LYRICA [Suspect]
     Dosage: 75 MG/DAY
     Route: 048

REACTIONS (1)
  - Loss of consciousness [Unknown]
